FAERS Safety Report 7041923 (Version 2)
Quarter: 2013Q4

REPORT INFORMATION
  Report Type: Report from Study
  Country: GB (occurrence: GB)
  Receive Date: 20090706
  Receipt Date: 20131204
  Transmission Date: 20140711
  Serious: Yes (Hospitalization, Other)
  Sender: FDA-Public Use
  Company Number: PHHY2009GB23186

PATIENT
  Age: 40 Year
  Sex: Female

DRUGS (5)
  1. CLOZARIL [Suspect]
     Indication: SCHIZOPHRENIA
     Dosage: 150 MG, QD
     Dates: start: 20090424, end: 20090510
  2. CLOZARIL [Suspect]
     Dosage: UNK
     Dates: start: 20090527, end: 20090606
  3. DEPAKOTE [Concomitant]
     Indication: AFFECTIVE DISORDER
     Dosage: 500 MG, BID
     Route: 048
  4. RISPERIDONE [Concomitant]
     Indication: PSYCHOTIC DISORDER
     Dosage: 1 MG, BID
     Route: 048
  5. CLENIL [Concomitant]
     Indication: ASTHMA
     Dosage: 2 DF, BID

REACTIONS (12)
  - Urinary tract infection [Unknown]
  - Malaise [Unknown]
  - Circulatory collapse [Unknown]
  - Vomiting [Unknown]
  - Blood pressure fluctuation [Recovered/Resolved]
  - Heart rate abnormal [Recovered/Resolved]
  - Supraventricular tachycardia [Unknown]
  - Dyspnoea [Unknown]
  - Faecal incontinence [Unknown]
  - Urinary incontinence [Unknown]
  - Dizziness [Unknown]
  - Haemoglobin decreased [Unknown]
